FAERS Safety Report 4383264-2 (Version None)
Quarter: 2004Q2

REPORT INFORMATION
  Report Type: 
  Country: None (occurrence: None)
  Receive Date: 20040622
  Receipt Date: 20040622
  Transmission Date: 20050107
  Serious: Yes (Other)
  Sender: FDA-Public Use
  Company Number: None

PATIENT
  Age: 80 Year
  Sex: Male

DRUGS (11)
  1. FORMOTEROL INHALER (CAPS) BY NOVARITIS [Suspect]
     Indication: CHRONIC OBSTRUCTIVE AIRWAYS DISEASE
     Dosage: 12 MCG INHALE BID
     Route: 042
     Dates: start: 20030819, end: 20030912
  2. ALBUTEROL [Concomitant]
  3. ASPIRIN [Concomitant]
  4. ATENOLOL [Concomitant]
  5. CALCIUM CARBONATE [Concomitant]
  6. CLOTRIMAZOLE [Concomitant]
  7. HCTZ/TMT [Concomitant]
  8. IBUPROFEN [Concomitant]
  9. LANSOPRAZOLE [Concomitant]
  10. LISINOPRIL [Concomitant]
  11. SALMETEROL [Concomitant]

REACTIONS (5)
  - FEELING ABNORMAL [None]
  - MOVEMENT DISORDER [None]
  - NERVOUSNESS [None]
  - PHARMACEUTICAL PRODUCT COMPLAINT [None]
  - PRURITUS [None]
